FAERS Safety Report 6770589-6 (Version None)
Quarter: 2010Q2

REPORT INFORMATION
  Report Type: 
  Country: None (occurrence: None)
  Receive Date: 20100615
  Receipt Date: 20100607
  Transmission Date: 20101027
  Serious: Yes (Other)
  Sender: FDA-Public Use
  Company Number: CA-ASTRAZENECA-2010SE27346

PATIENT
  Age: 47 Year
  Sex: Male

DRUGS (7)
  1. CRESTOR [Suspect]
     Route: 048
  2. AVALID [Concomitant]
     Route: 048
  3. DIABETA [Concomitant]
     Route: 048
  4. DILAUDID [Concomitant]
     Route: 048
  5. NOVO-CLONIDINE [Concomitant]
     Route: 048
  6. PREVACID [Concomitant]
     Route: 048
  7. ZOLOFT [Concomitant]
     Route: 048

REACTIONS (13)
  - ABDOMINAL PAIN UPPER [None]
  - ANGER [None]
  - BLOOD PRESSURE DECREASED [None]
  - CHROMATURIA [None]
  - DIZZINESS [None]
  - HYPOTENSION [None]
  - JAUNDICE [None]
  - LIVER DISORDER [None]
  - MALAISE [None]
  - OCULAR ICTERUS [None]
  - PERSONALITY CHANGE [None]
  - PRURITUS [None]
  - SCAB [None]
